FAERS Safety Report 24283728 (Version 2)
Quarter: 2024Q4

REPORT INFORMATION
  Report Type: Report from Study
  Country: US (occurrence: US)
  Receive Date: 20240905
  Receipt Date: 20241115
  Transmission Date: 20250115
  Serious: Yes (Other)
  Sender: ABBVIE
  Company Number: US-ABBVIE-5896730

PATIENT
  Age: 55 Year
  Sex: Male

DRUGS (1)
  1. SKYRIZI [Suspect]
     Active Substance: RISANKIZUMAB-RZAA
     Indication: Product used for unknown indication
     Route: 058
     Dates: start: 20240508, end: 20240808

REACTIONS (5)
  - Systemic lupus erythematosus [Unknown]
  - Cheilitis [Not Recovered/Not Resolved]
  - Burning sensation [Unknown]
  - Pain in extremity [Unknown]
  - Unevaluable event [Unknown]

NARRATIVE: CASE EVENT DATE: 20240101
